FAERS Safety Report 6218818-1 (Version None)
Quarter: 2009Q2

REPORT INFORMATION
  Report Type: 
  Country: None (occurrence: None)
  Receive Date: 20090608
  Receipt Date: 20090525
  Transmission Date: 20091009
  Serious: Yes (Hospitalization)
  Sender: FDA-Public Use
  Company Number: SE-ELI_LILLY_AND_COMPANY-SE200906000447

PATIENT
  Age: 74 Year
  Sex: Female

DRUGS (2)
  1. ZYPREXA [Suspect]
     Indication: PSYCHOTIC DISORDER
     Dosage: UNK, UNK
     Route: 048
     Dates: start: 20090319
  2. RISPERDAL [Concomitant]
     Indication: PSYCHOTIC DISORDER
     Dosage: UNK, UNK
     Route: 048
     Dates: start: 20090319

REACTIONS (2)
  - HYPOCHROMIC ANAEMIA [None]
  - THROMBOCYTOPENIA [None]
